FAERS Safety Report 25916141 (Version 1)
Quarter: 2025Q4

REPORT INFORMATION
  Report Type: Spontaneous
  Country: CA (occurrence: CA)
  Receive Date: 20251014
  Receipt Date: 20251014
  Transmission Date: 20260118
  Serious: Yes (Other)
  Sender: ACCORD
  Company Number: None

PATIENT
  Age: 8 Decade
  Sex: Female

DRUGS (11)
  1. MONTELUKAST [Suspect]
     Active Substance: MONTELUKAST
     Indication: Urticaria
  2. BILASTINE [Suspect]
     Active Substance: BILASTINE
     Indication: Urticaria
  3. CETIRIZINE [Suspect]
     Active Substance: CETIRIZINE HYDROCHLORIDE
     Indication: Urticaria
  4. FAMOTIDINE [Suspect]
     Active Substance: FAMOTIDINE
     Indication: Urticaria
  5. OMALIZUMAB [Suspect]
     Active Substance: OMALIZUMAB
     Indication: Urticaria
  6. RUPATADINE FUMARATE [Suspect]
     Active Substance: RUPATADINE FUMARATE
     Indication: Urticaria
  7. CYCLOSPORINE [Suspect]
     Active Substance: CYCLOSPORINE
     Indication: Chronic spontaneous urticaria
     Dosage: 1 EVERY .5 DAYS
  8. COLCHICINE [Suspect]
     Active Substance: COLCHICINE
     Indication: Chronic spontaneous urticaria
     Dosage: 1 EVERY .5 DAYS
  9. OMALIZUMAB [Concomitant]
     Active Substance: OMALIZUMAB
     Indication: Chronic spontaneous urticaria
  10. CYCLOSPORINE [Suspect]
     Active Substance: CYCLOSPORINE
     Indication: Chronic spontaneous urticaria
     Dosage: 1 EVERY .5 DAYS
  11. OMALIZUMAB [Concomitant]
     Active Substance: OMALIZUMAB
     Indication: Chronic spontaneous urticaria
     Dosage: 1 EVERY 4 WEEKS
     Route: 058

REACTIONS (2)
  - Treatment failure [Unknown]
  - Renal impairment [Unknown]
